FAERS Safety Report 25811432 (Version 1)
Quarter: 2025Q3

REPORT INFORMATION
  Report Type: Spontaneous
  Country: CA (occurrence: CA)
  Receive Date: 20250917
  Receipt Date: 20250917
  Transmission Date: 20251021
  Serious: Yes (Other)
  Sender: JOHNSON AND JOHNSON
  Company Number: CA-JNJFOC-20250916207

PATIENT
  Age: 67 Year
  Sex: Female

DRUGS (1)
  1. USTEKINUMAB [Suspect]
     Active Substance: USTEKINUMAB
     Indication: Psoriasis
     Route: 058

REACTIONS (6)
  - Insomnia [Unknown]
  - Irritability [Unknown]
  - Palpitations [Unknown]
  - Intentional product use issue [Unknown]
  - Psoriasis [Unknown]
  - Headache [Unknown]
